FAERS Safety Report 5541960-5 (Version None)
Quarter: 2007Q4

REPORT INFORMATION
  Report Type: 
  Country: None (occurrence: None)
  Receive Date: 20071210
  Receipt Date: 20061211
  Transmission Date: 20080405
  Serious: No
  Sender: FDA-Public Use
  Company Number: US-AMGEN-KDL203254

PATIENT
  Sex: Female

DRUGS (4)
  1. ENBREL [Suspect]
     Indication: PSORIATIC ARTHROPATHY
     Route: 058
     Dates: start: 20060928, end: 20061112
  2. METHOTREXATE [Concomitant]
     Route: 065
     Dates: start: 20020101
  3. PLAQUENIL [Concomitant]
     Route: 065
     Dates: start: 20061031
  4. UNKNOWN [Concomitant]

REACTIONS (1)
  - THERAPEUTIC RESPONSE DELAYED [None]
